FAERS Safety Report 15690770 (Version 1)
Quarter: 2018Q4

REPORT INFORMATION
  Report Type: Spontaneous
  Country: US (occurrence: US)
  Receive Date: 20181205
  Receipt Date: 20181205
  Transmission Date: 20190205
  Serious: Yes (Hospitalization)
  Sender: FDA-Public Use
  Company Number: US-THERAVANCE-2018-000043

PATIENT
  Age: 67 Year
  Sex: Male

DRUGS (1)
  1. VIBATIV [Suspect]
     Active Substance: TELAVANCIN HYDROCHLORIDE
     Indication: ABSCESS
     Dosage: 750 MG, QD
     Route: 042

REACTIONS (2)
  - Dialysis [Unknown]
  - Blood creatinine increased [Unknown]

NARRATIVE: CASE EVENT DATE: 20180510
